FAERS Safety Report 24236893 (Version 1)
Quarter: 2024Q3

REPORT INFORMATION
  Report Type: Spontaneous
  Country: FR (occurrence: FR)
  Receive Date: 20240822
  Receipt Date: 20240822
  Transmission Date: 20241016
  Serious: Yes (Hospitalization, Other)
  Sender: ZYDUS PHARM
  Company Number: FR-CADILA HEALTHCARE LIMITED-FR-ZYDUS-111039

PATIENT

DRUGS (2)
  1. FLUCONAZOLE [Suspect]
     Active Substance: FLUCONAZOLE
     Indication: Candida infection
     Dosage: 400 MILLIGRAM, QD
     Route: 048
  2. FLUCYTOSINE [Suspect]
     Active Substance: FLUCYTOSINE
     Indication: Candida infection
     Dosage: 3 GRAM, QD
     Route: 048

REACTIONS (3)
  - Ventricular tachycardia [Recovering/Resolving]
  - Cardiac arrest [Recovering/Resolving]
  - Cardiotoxicity [Recovering/Resolving]
